FAERS Safety Report 6243809-4 (Version None)
Quarter: 2009Q2

REPORT INFORMATION
  Report Type: 
  Country: None (occurrence: None)
  Receive Date: 20090623
  Receipt Date: 20090612
  Transmission Date: 20091009
  Serious: Yes (Hospitalization, Other)
  Sender: FDA-Public Use
  Company Number: 20096243

PATIENT
  Age: 23 Year
  Sex: Male

DRUGS (1)
  1. LIORESAL [Suspect]
     Dosage: MCG, DAILY, INTRATHECAL
     Route: 037

REACTIONS (5)
  - CONVULSION [None]
  - ILL-DEFINED DISORDER [None]
  - MENTAL STATUS CHANGES [None]
  - MUSCLE SPASTICITY [None]
  - PYREXIA [None]
